FAERS Safety Report 12767896 (Version 3)
Quarter: 2016Q4

REPORT INFORMATION
  Report Type: Report from Study
  Country: US (occurrence: US)
  Receive Date: 20160921
  Receipt Date: 20161117
  Transmission Date: 20170207
  Serious: Yes (Hospitalization, Other)
  Sender: FDA-Public Use
  Company Number: US-ALEXION-A201606903

PATIENT
  Sex: Male

DRUGS (1)
  1. SOLIRIS [Suspect]
     Active Substance: ECULIZUMAB
     Indication: HAEMOLYTIC URAEMIC SYNDROME
     Dosage: UNK
     Route: 042

REACTIONS (9)
  - Blood pressure increased [Not Recovered/Not Resolved]
  - Blood creatinine increased [Unknown]
  - Fistula [Not Recovered/Not Resolved]
  - Obstruction [Not Recovered/Not Resolved]
  - Renal artery stenosis [Unknown]
  - Blood potassium increased [Unknown]
  - Fistula inflammation [Not Recovered/Not Resolved]
  - Urinary incontinence [Unknown]
  - Urinary retention [Recovered/Resolved]

NARRATIVE: CASE EVENT DATE: 20160912
